FAERS Safety Report 16791031 (Version 1)
Quarter: 2019Q3

REPORT INFORMATION
  Report Type: Spontaneous
  Country: GB (occurrence: GB)
  Receive Date: 20190910
  Receipt Date: 20190910
  Transmission Date: 20191005
  Serious: Yes (Hospitalization)
  Sender: FDA-Public Use
  Company Number: GB-TEVA-2019-GB-1103556

PATIENT
  Age: 1 Month
  Sex: Male
  Weight: 4 kg

DRUGS (3)
  1. GAVISCON [Concomitant]
     Active Substance: ALUMINUM HYDROXIDE\MAGNESIUM CARBONATE
     Dosage: ONE SACHET WITH FEED MAX 4 PER DAY
     Dates: start: 20190807
  2. CHLORAMPHENICOL [Concomitant]
     Active Substance: CHLORAMPHENICOL
     Dosage: 4 GTT
     Dates: start: 20190719, end: 20190723
  3. FENTANYL. [Suspect]
     Active Substance: FENTANYL
     Dates: start: 20190813

REACTIONS (1)
  - Muscle rigidity [Recovering/Resolving]

NARRATIVE: CASE EVENT DATE: 20190813
